FAERS Safety Report 14482883 (Version 2)
Quarter: 2018Q1

REPORT INFORMATION
  Report Type: Spontaneous
  Country: US (occurrence: US)
  Receive Date: 20180203
  Receipt Date: 20180216
  Transmission Date: 20180509
  Serious: No
  Sender: FDA-Public Use
  Company Number: US-JNJFOC-20180127106

PATIENT
  Sex: Male

DRUGS (1)
  1. DURAGESIC [Suspect]
     Active Substance: FENTANYL
     Indication: PRODUCT USED FOR UNKNOWN INDICATION
     Route: 062

REACTIONS (6)
  - Pain [Not Recovered/Not Resolved]
  - Body temperature increased [Unknown]
  - Hyperhidrosis [Unknown]
  - Heart rate increased [Unknown]
  - Drug effect decreased [Unknown]
  - General physical condition abnormal [Not Recovered/Not Resolved]
